FAERS Safety Report 5228378-X (Version None)
Quarter: 2007Q1

REPORT INFORMATION
  Report Type: 
  Country: None (occurrence: None)
  Receive Date: 20070131
  Receipt Date: 20070116
  Transmission Date: 20070707
  Serious: Yes (Hospitalization)
  Sender: FDA-Public Use
  Company Number: 2007RR-05395

PATIENT
  Age: 31 Year
  Sex: Male

DRUGS (4)
  1. MINOCYCLINE HYDROCHLORIDE [Suspect]
     Indication: ACNE
  2. AMPICILLIN [Suspect]
     Indication: ACNE
  3. GENTAMICIN [Suspect]
     Indication: ACNE
  4. FLOXACILLIN SODIUM [Suspect]
     Indication: ACNE

REACTIONS (6)
  - AGRANULOCYTOSIS [None]
  - ANTIBODY TEST POSITIVE [None]
  - SKIN NECROSIS [None]
  - SKIN ULCER [None]
  - SWELLING FACE [None]
  - TORSADE DE POINTES [None]
